FAERS Safety Report 6186647-3 (Version None)
Quarter: 2009Q2

REPORT INFORMATION
  Report Type: 
  Country: None (occurrence: None)
  Receive Date: 20090512
  Receipt Date: 20090507
  Transmission Date: 20091009
  Serious: Yes (Hospitalization, Other)
  Sender: FDA-Public Use
  Company Number: DE-BIOGENIDEC-2008BI031918

PATIENT
  Sex: Male
  Weight: 70 kg

DRUGS (7)
  1. TYSABRI [Suspect]
     Indication: RELAPSING-REMITTING MULTIPLE SCLEROSIS
     Route: 042
     Dates: start: 20061012, end: 20081029
  2. VIGIL [Concomitant]
  3. NSAIDS [Concomitant]
  4. SIMVASTATIN [Concomitant]
  5. MUSCLE RELAXANT [Concomitant]
  6. ANTIHYPERTENSIVE [Concomitant]
  7. LEVETIRACETAM [Concomitant]

REACTIONS (1)
  - PROGRESSIVE MULTIFOCAL LEUKOENCEPHALOPATHY [None]
